FAERS Safety Report 11706029 (Version 1)
Quarter: 2015Q4

REPORT INFORMATION
  Report Type: Spontaneous
  Country: BR (occurrence: BR)
  Receive Date: 20151106
  Receipt Date: 20151106
  Transmission Date: 20160304
  Serious: Yes (Other)
  Sender: FDA-Public Use
  Company Number: BR-PFIZER INC-2015373753

PATIENT
  Sex: Male

DRUGS (1)
  1. PRISTIQ EXTENDED RELEASE [Suspect]
     Active Substance: DESVENLAFAXINE SUCCINATE
     Indication: ANTIDEPRESSANT THERAPY
     Dosage: UNK
     Route: 048
     Dates: end: 20151028

REACTIONS (8)
  - Feeling cold [Unknown]
  - Drug withdrawal syndrome [Not Recovered/Not Resolved]
  - Insomnia [Unknown]
  - Agitation [Unknown]
  - Feeling hot [Unknown]
  - Cerebral disorder [Unknown]
  - Myocardial infarction [Unknown]
  - Logorrhoea [Unknown]

NARRATIVE: CASE EVENT DATE: 201510
